FAERS Safety Report 25889720 (Version 3)
Quarter: 2025Q4

REPORT INFORMATION
  Report Type: Spontaneous
  Country: EU (occurrence: EU)
  Receive Date: 20251007
  Receipt Date: 20251024
  Transmission Date: 20260117
  Serious: Yes (Hospitalization, Other)
  Sender: CELLTRION
  Company Number: EU-Accord-433729

PATIENT

DRUGS (15)
  1. INFLIXIMAB [Suspect]
     Active Substance: INFLIXIMAB
     Indication: Takayasu^s arteritis
     Dosage: 5 MG/KG, Q4WEEKS (STRENGTH NAME PART: 100 MG / 1 EA)
     Route: 041
  2. INFLIXIMAB [Suspect]
     Active Substance: INFLIXIMAB
     Dosage: 5 MG/KG, EVERY 4WEEKS
     Route: 065
  3. MYCOPHENOLATE MOFETIL [Suspect]
     Active Substance: MYCOPHENOLATE MOFETIL
     Indication: Takayasu^s arteritis
     Dosage: 3 G, EVERY 1 DAY
     Route: 065
  4. PYRIMETHAMINE [Concomitant]
     Active Substance: PYRIMETHAMINE
     Dosage: 50 MG 1 PER DAY WITH A LOADING DOSE OF 100 MG
  5. SULFADIAZINE [Concomitant]
     Active Substance: SULFADIAZINE
     Dosage: 1000 MG, QD
  6. SULFADIAZINE [Concomitant]
     Active Substance: SULFADIAZINE
     Dosage: 1000 MG, EVERY 0.25 DAY
  7. LEUCOVORIN [Concomitant]
     Active Substance: LEUCOVORIN\LEUCOVORIN CALCIUM
  8. DEXAMETHASONE [Concomitant]
     Active Substance: DEXAMETHASONE
     Dosage: 10 MG, EVERY 1 DAY
  9. SULFAMETROLE\TRIMETHOPRIM [Concomitant]
     Active Substance: SULFAMETROLE\TRIMETHOPRIM
     Dosage: 1 DAY (ADDITIONAL INFORMATION ON DRUG (FREE TEXT): 800/160 MG)
  10. BARICITINIB [Concomitant]
     Active Substance: BARICITINIB
  11. PREDNISOLONE [Concomitant]
     Active Substance: PREDNISOLONE
     Dosage: 25 MG, EVERY 1 DAY
     Route: 048
  12. PREDNISOLONE [Concomitant]
     Active Substance: PREDNISOLONE
     Dosage: 10 MG, EVERY 1 DAY
  13. LACOSAMIDE [Concomitant]
     Active Substance: LACOSAMIDE
     Dosage: 200 MG, EVERY 0.5 DAY
  14. CEFTRIAXONE [Concomitant]
     Active Substance: CEFTRIAXONE
     Dosage: 2 G, EVERY 0.5 DAY
  15. LEUCOVORIN CALCIUM [Concomitant]
     Active Substance: LEUCOVORIN CALCIUM
     Dosage: 15 MG, EVERY 1 DAY

REACTIONS (7)
  - Breast cancer [Unknown]
  - Abscess [Recovering/Resolving]
  - Cerebral toxoplasmosis [Recovering/Resolving]
  - Cytomegalovirus chorioretinitis [Unknown]
  - Retinitis [Unknown]
  - Toxoplasmosis [Unknown]
  - Off label use [Unknown]
